FAERS Safety Report 9769390 (Version 1)
Quarter: 2013Q4

REPORT INFORMATION
  Report Type: Spontaneous
  Country: US (occurrence: None)
  Receive Date: 20131217
  Receipt Date: 20131217
  Transmission Date: 20140711
  Serious: Yes (Other)
  Sender: FDA-Public Use
  Company Number: None

PATIENT
  Age: 47 Year
  Sex: Male
  Weight: 72.58 kg

DRUGS (3)
  1. AZO [Suspect]
     Indication: RENAL COLIC
     Route: 048
     Dates: start: 20130902, end: 20130902
  2. HYDROCODONE [Concomitant]
  3. CEPHALEXIN [Concomitant]

REACTIONS (7)
  - Anuria [None]
  - Dizziness [None]
  - Nausea [None]
  - Dehydration [None]
  - Vomiting [None]
  - Local swelling [None]
  - Renal impairment [None]
